FAERS Safety Report 10070808 (Version 1)
Quarter: 2014Q2

REPORT INFORMATION
  Report Type: Report from Study
  Country: DE (occurrence: CO)
  Receive Date: 20140410
  Receipt Date: 20140410
  Transmission Date: 20141212
  Serious: Yes (Death, Hospitalization, Other)
  Sender: FDA-Public Use
  Company Number: DE-ACTELION-A-US2014-97361

PATIENT
  Sex: Female

DRUGS (1)
  1. VENTAVIS [Suspect]
     Indication: PULMONARY HYPERTENSION
     Dosage: 6X DAILY
     Route: 055
     Dates: start: 20130411

REACTIONS (3)
  - Cardio-respiratory arrest [Fatal]
  - Cardio-respiratory arrest [Unknown]
  - Nasal congestion [Unknown]
